FAERS Safety Report 7141836-6 (Version None)
Quarter: 2010Q4

REPORT INFORMATION
  Report Type: 
  Country: None (occurrence: None)
  Receive Date: 20101207
  Receipt Date: 20101124
  Transmission Date: 20110411
  Serious: Yes (Other)
  Sender: FDA-Public Use
  Company Number: PHHY2010IT76314

PATIENT
  Sex: Female

DRUGS (2)
  1. ZOMETA [Suspect]
     Indication: BREAST CANCER
     Dosage: 4 MG, MONTHLY
     Route: 042
     Dates: start: 20090701, end: 20091006
  2. ZOMETA [Suspect]
     Indication: METASTASES TO BONE

REACTIONS (4)
  - JAW DISORDER [None]
  - JAW FRACTURE [None]
  - OSTEONECROSIS [None]
  - SURGERY [None]
